FAERS Safety Report 9845035 (Version 1)
Quarter: 2014Q1

REPORT INFORMATION
  Report Type: Spontaneous
  Country: IT (occurrence: IT)
  Receive Date: 20140127
  Receipt Date: 20140127
  Transmission Date: 20141002
  Serious: Yes (Other)
  Sender: FDA-Public Use
  Company Number: IT-MYLANLABS-2014S1001145

PATIENT
  Age: 52 Year
  Sex: Female

DRUGS (2)
  1. KETOROLAC TROMETAMOL [Suspect]
     Indication: PAIN
     Dosage: 1 DF DAILY
     Route: 030
     Dates: start: 20131126, end: 20131128
  2. DEPALGOS [Suspect]
     Indication: PAIN
     Dosage: 5 MG DAILY
     Route: 048
     Dates: start: 20131126, end: 20131128

REACTIONS (2)
  - Asthenia [Unknown]
  - Sopor [Unknown]
